FAERS Safety Report 6682802-4 (Version None)
Quarter: 2010Q2

REPORT INFORMATION
  Report Type: 
  Country: None (occurrence: None)
  Receive Date: 20100415
  Receipt Date: 20100407
  Transmission Date: 20101027
  Serious: Yes (Death)
  Sender: FDA-Public Use
  Company Number: FR-GENZYME-FABR-1001306

PATIENT
  Sex: Male
  Weight: 65 kg

DRUGS (2)
  1. FABRAZYME [Suspect]
     Indication: FABRY'S DISEASE
     Dosage: UNK
     Route: 042
     Dates: end: 20100330
  2. FABRAZYME [Suspect]
     Dosage: UNK
     Route: 042
     Dates: start: 20050630

REACTIONS (2)
  - HYPERTROPHIC CARDIOMYOPATHY [None]
  - VENTRICULAR ARRHYTHMIA [None]
